FAERS Safety Report 6510135-5 (Version None)
Quarter: 2009Q4

REPORT INFORMATION
  Report Type: 
  Country: None (occurrence: None)
  Receive Date: 20091222
  Receipt Date: 20091210
  Transmission Date: 20100525
  Serious: Yes (Other)
  Sender: FDA-Public Use
  Company Number: B0610894A

PATIENT
  Age: 32 Year
  Sex: Male

DRUGS (3)
  1. PAXIL [Suspect]
     Indication: DEPRESSION
     Route: 048
     Dates: start: 20070501, end: 20081101
  2. CARBAMAZEPINE [Concomitant]
     Dosage: 400MG PER DAY
     Route: 048
  3. CLOBAZAM [Concomitant]
     Indication: TEMPORAL LOBE EPILEPSY
     Route: 048
     Dates: start: 20071201

REACTIONS (8)
  - ANGER [None]
  - EMOTIONAL DISORDER [None]
  - EUPHORIC MOOD [None]
  - HYPOMANIA [None]
  - IMPULSE-CONTROL DISORDER [None]
  - INSOMNIA [None]
  - LOGORRHOEA [None]
  - MOOD ALTERED [None]
